FAERS Safety Report 13284197 (Version 1)
Quarter: 2017Q1

REPORT INFORMATION
  Report Type: Spontaneous
  Country: TR (occurrence: TR)
  Receive Date: 20170301
  Receipt Date: 20170301
  Transmission Date: 20170428
  Serious: Yes (Other)
  Sender: FDA-Public Use
  Company Number: TR-UCBSA-2017007813

PATIENT
  Sex: Female

DRUGS (2)
  1. BENVIDA [Suspect]
     Active Substance: LACOSAMIDE
     Indication: EPILEPSY
     Dosage: 50MG 2X1
     Route: 048
  2. BENVIDA [Suspect]
     Active Substance: LACOSAMIDE
     Dosage: 100MG 2X1
     Route: 048

REACTIONS (1)
  - Thrombocytopenia [Recovered/Resolved]
